FAERS Safety Report 18795292 (Version 4)
Quarter: 2021Q1

REPORT INFORMATION
  Report Type: Spontaneous
  Country: JP (occurrence: JP)
  Receive Date: 20210127
  Receipt Date: 20210329
  Transmission Date: 20210419
  Serious: Yes (Hospitalization)
  Sender: FDA-Public Use
  Company Number: JP-JNJFOC-20210128513

PATIENT
  Age: 38 Year
  Sex: Female
  Weight: 47.3 kg

DRUGS (21)
  1. OPSUMIT [Suspect]
     Active Substance: MACITENTAN
     Route: 048
     Dates: start: 20200414, end: 20200427
  2. FENTOS [Suspect]
     Active Substance: FENTANYL
     Route: 062
     Dates: start: 2020
  3. URSODEOXYCHOLIC ACID [Concomitant]
     Active Substance: URSODIOL
     Route: 048
  4. ALDACTONE A [Concomitant]
     Active Substance: SPIRONOLACTONE
     Route: 048
  5. PL [Concomitant]
     Active Substance: ACETAMINOPHEN\CAFFEINE\PROMETHAZINE\SALICYLAMIDE
     Indication: HEADACHE
     Dates: start: 20200729, end: 20200803
  6. UPTRAVI [Suspect]
     Active Substance: SELEXIPAG
     Indication: PULMONARY HYPERTENSION
     Route: 048
     Dates: start: 20200730, end: 2020
  7. UPTRAVI [Suspect]
     Active Substance: SELEXIPAG
     Route: 048
     Dates: start: 2020, end: 20200924
  8. FENTOS [Suspect]
     Active Substance: FENTANYL
     Indication: PAIN
     Route: 062
     Dates: start: 20200729, end: 2020
  9. DIART [Concomitant]
     Active Substance: AZOSEMIDE
     Route: 048
  10. OPSUMIT [Suspect]
     Active Substance: MACITENTAN
     Indication: PULMONARY HYPERTENSION
     Route: 048
     Dates: start: 20200428
  11. FEBURIC [Concomitant]
     Active Substance: FEBUXOSTAT
     Route: 048
  12. ASPARA K [Concomitant]
     Active Substance: POTASSIUM ASPARTATE
     Dosage: DOSE UNKNOWN
     Route: 048
  13. BROTIZOLAM OD [Concomitant]
     Active Substance: BROTIZOLAM
     Route: 048
  14. SAMSCA OD [Concomitant]
     Route: 048
  15. ALFACALCIDOL [Concomitant]
     Active Substance: ALFACALCIDOL
     Route: 048
  16. MENATETRENONE [Concomitant]
     Active Substance: MENATETRENONE
     Route: 048
  17. PANVITAN [VITAMINS NOS] [Concomitant]
     Dosage: DOSE UNKNOWN
     Route: 048
  18. ADCIRCA [Concomitant]
     Active Substance: TADALAFIL
     Route: 048
  19. UPTRAVI [Suspect]
     Active Substance: SELEXIPAG
     Indication: PULMONARY ARTERIAL HYPERTENSION
     Route: 048
     Dates: start: 20200423, end: 20200523
  20. TSUMURA INCHINKOTO EXTRACT GRANULES FOR ETHICAL USE [Concomitant]
     Dosage: DOSE UNKNOWN
     Route: 048
  21. CALCIUM LACTATE HYDRATE [Concomitant]
     Active Substance: CALCIUM LACTATE
     Dosage: DOSE UNKNOWN
     Route: 048

REACTIONS (5)
  - Headache [Recovering/Resolving]
  - Incorrect dose administered [Unknown]
  - Platelet count decreased [Recovered/Resolved]
  - Off label use [Unknown]
  - Oedema [Unknown]

NARRATIVE: CASE EVENT DATE: 20200414
